FAERS Safety Report 5117958-8 (Version None)
Quarter: 2006Q3

REPORT INFORMATION
  Report Type: 
  Country: None (occurrence: None)
  Receive Date: 20060926
  Receipt Date: 20060913
  Transmission Date: 20061208
  Serious: Yes (Death, Hospitalization, Other)
  Sender: FDA-Public Use
  Company Number: 2005168562

PATIENT
  Age: 75 Year
  Sex: Male
  Weight: 66 kg

DRUGS (4)
  1. SUTENT [Suspect]
     Indication: METASTATIC RENAL CELL CARCINOMA
     Dosage: 37.5 MG (37.5 MG, CYCLIC INTERVAL: 4 WEEKS CYCLE), ORAL
     Route: 048
     Dates: start: 20050620, end: 20051117
  2. LOPERAMIDE [Concomitant]
  3. LORAZEPAM [Concomitant]
  4. OMEPRAZOLE [Concomitant]

REACTIONS (24)
  - AMYLOIDOSIS [None]
  - ANGIOPATHY [None]
  - AORTIC ARTERIOSCLEROSIS [None]
  - ARTERIOSCLEROSIS CORONARY ARTERY [None]
  - ASCITES [None]
  - CHOLELITHIASIS [None]
  - DEHYDRATION [None]
  - DEMENTIA ALZHEIMER'S TYPE [None]
  - DIARRHOEA [None]
  - DYSPNOEA [None]
  - GASTRIC HAEMORRHAGE [None]
  - GASTROINTESTINAL OBSTRUCTION [None]
  - GENERAL PHYSICAL HEALTH DETERIORATION [None]
  - GENERALISED OEDEMA [None]
  - HEPATOCELLULAR FOAMY CELL SYNDROME [None]
  - MALIGNANT NEOPLASM PROGRESSION [None]
  - MALIGNANT PERITONEAL NEOPLASM [None]
  - METASTASES TO CHEST WALL [None]
  - METASTASES TO LUNG [None]
  - METASTATIC NEOPLASM [None]
  - NEPHROANGIOSCLEROSIS [None]
  - PROSTATE CANCER [None]
  - RENAL CELL CARCINOMA STAGE UNSPECIFIED [None]
  - RENAL FAILURE ACUTE [None]
